FAERS Safety Report 6329163-8 (Version None)
Quarter: 2009Q3

REPORT INFORMATION
  Report Type: 
  Country: None (occurrence: None)
  Receive Date: 20090826
  Receipt Date: 20081226
  Transmission Date: 20100115
  Serious: No
  Sender: FDA-Public Use
  Company Number: US-ASTRAZENECA-2008UW28792

PATIENT
  Age: 68 Year
  Sex: Female

DRUGS (1)
  1. IRESSA [Suspect]
     Dosage: 250 MG
     Route: 048

REACTIONS (1)
  - SKIN HYPERPIGMENTATION [None]
